FAERS Safety Report 8690827 (Version 7)
Quarter: 2013Q3

REPORT INFORMATION
  Report Type: Spontaneous
  Country: US (occurrence: US)
  Receive Date: 20120729
  Receipt Date: 20130731
  Transmission Date: 20140515
  Serious: Yes (Hospitalization, Disabling, Other)
  Sender: FDA-Public Use
  Company Number: US-009507513-1207USA006533

PATIENT
  Sex: Female

DRUGS (4)
  1. FOSAMAX [Suspect]
     Indication: OSTEOPOROSIS
     Dosage: 10 MG, UNK
     Route: 048
     Dates: start: 199510, end: 200410
  2. FOSAMAX [Suspect]
     Dosage: 70 MG, UNK
     Route: 048
     Dates: start: 200410, end: 20070101
  3. ALENDRONATE SODIUM [Suspect]
     Indication: OSTEOPOROSIS
     Dosage: 70 MG, UNK
     Route: 048
  4. CALCIUM (UNSPECIFIED) [Concomitant]
     Dosage: 1500 MG, UNK
     Dates: start: 1995

REACTIONS (14)
  - Femur fracture [Unknown]
  - Intramedullary rod insertion [Unknown]
  - Fall [Unknown]
  - Wrist fracture [Unknown]
  - Dental implantation [Unknown]
  - Hypertension [Unknown]
  - Blood cholesterol increased [Unknown]
  - Traumatic arthritis [Unknown]
  - Lower limb fracture [Recovered/Resolved]
  - Barrett^s oesophagus [Unknown]
  - Hiatus hernia [Unknown]
  - Metaplasia [Unknown]
  - Gastrooesophageal reflux disease [Unknown]
  - Erosive oesophagitis [Unknown]
